FAERS Safety Report 12204224 (Version 1)
Quarter: 2016Q1

REPORT INFORMATION
  Report Type: Spontaneous
  Country: US (occurrence: None)
  Receive Date: 20160322
  Receipt Date: 20160322
  Transmission Date: 20160526
  Serious: No
  Sender: FDA-Public Use
  Company Number: None

PATIENT
  Age: 53 Year
  Sex: Male
  Weight: 113.3 kg

DRUGS (1)
  1. NEXAVAR [Suspect]
     Active Substance: SORAFENIB
     Indication: CONNECTIVE TISSUE NEOPLASM
     Route: 048
     Dates: start: 20160226, end: 20160309

REACTIONS (5)
  - Abscess rupture [None]
  - Palmar-plantar erythrodysaesthesia syndrome [None]
  - Rash [None]
  - Abdominal pain upper [None]
  - Anal abscess [None]

NARRATIVE: CASE EVENT DATE: 20160226
